FAERS Safety Report 9520740 (Version 2)
Quarter: 2013Q3

REPORT INFORMATION
  Report Type: Spontaneous
  Country: GB (occurrence: None)
  Receive Date: 20130911
  Receipt Date: 20130923
  Transmission Date: 20140515
  Serious: Yes (Other)
  Sender: FDA-Public Use
  Company Number: AUR-APL-2013-07353

PATIENT
  Age: 77 Year
  Sex: Male

DRUGS (4)
  1. RAMIPRIL [Suspect]
     Indication: PRODUCT USED FOR UNKNOWN INDICATION
     Dosage: 5 MG (5 MG, 1 IN 1 D), UNKNOWN
  2. DOXAZOSIN [Suspect]
     Indication: PRODUCT USED FOR UNKNOWN INDICATION
     Dosage: STOPPED
     Dates: start: 201307
  3. ASPIRIN (ACETYLSALICYLIC ACID) [Concomitant]
  4. FELODIPINE (FELODIPINE) [Concomitant]

REACTIONS (1)
  - Atrial fibrillation [None]
